FAERS Safety Report 9275798 (Version 1)
Quarter: 2013Q2

REPORT INFORMATION
  Report Type: Spontaneous
  Country: AT (occurrence: AT)
  Receive Date: 20130507
  Receipt Date: 20130507
  Transmission Date: 20140414
  Serious: Yes (Hospitalization)
  Sender: FDA-Public Use
  Company Number: AT-TEVA-402539ISR

PATIENT
  Age: 14 Year
  Sex: Female

DRUGS (1)
  1. AMLODIPIN 10 MG [Suspect]
     Dosage: 1 X
     Route: 048
     Dates: start: 20120604, end: 20120604

REACTIONS (5)
  - Hypotension [Recovered/Resolved]
  - Renal failure acute [Recovered/Resolved]
  - Dizziness [Recovered/Resolved]
  - Muscle spasms [Recovered/Resolved]
  - Intentional overdose [Recovered/Resolved]
